FAERS Safety Report 9463621 (Version 2)
Quarter: 2013Q3

REPORT INFORMATION
  Report Type: Report from Study
  Country: TW (occurrence: TW)
  Receive Date: 20130819
  Receipt Date: 20130827
  Transmission Date: 20140515
  Serious: Yes (Other)
  Sender: FDA-Public Use
  Company Number: PHHY2013TW088327

PATIENT
  Age: 41 Year
  Sex: Male
  Weight: 86 kg

DRUGS (69)
  1. NEORAL [Suspect]
     Indication: IMMUNOSUPPRESSANT DRUG THERAPY
     Dosage: 150 MG, UNK
     Route: 048
     Dates: start: 20091226
  2. NEORAL [Suspect]
     Dosage: 100 MG, UNK
     Route: 048
     Dates: start: 20100104
  3. NEORAL [Suspect]
     Dosage: 150 MG, UNK
     Route: 048
     Dates: start: 20100204
  4. NEORAL [Suspect]
     Dosage: 125 MG, UNK
     Route: 048
     Dates: start: 20100415
  5. NEORAL [Suspect]
     Dosage: 75 MG, UNK
     Route: 048
     Dates: start: 20100805
  6. NEORAL [Suspect]
     Dosage: 50 MG, UNK
     Route: 048
     Dates: start: 20120110
  7. ESOMEPRAZOLE [Concomitant]
     Indication: PROPHYLAXIS
     Dosage: 40 MG, QD
     Route: 048
     Dates: start: 20100104, end: 20100125
  8. ESOMEPRAZOLE [Concomitant]
     Dosage: 40 MG, QD
     Route: 048
     Dates: start: 20100218, end: 20100317
  9. ULTRACET [Concomitant]
     Indication: WOUND COMPLICATION
     Dosage: 1 DF, TID
     Route: 048
     Dates: start: 20100104, end: 20100118
  10. ENTECAVIR [Concomitant]
     Indication: ANTIVIRAL PROPHYLAXIS
     Dosage: 0.5 MG, QD
     Route: 048
     Dates: start: 20100104, end: 20100118
  11. ENTECAVIR [Concomitant]
     Indication: HEPATITIS ACUTE
     Dosage: 0.5 MG, QD
     Route: 048
     Dates: start: 20100208
  12. HEPATITIS B IMMUNE GLOBULIN [Concomitant]
     Indication: ANTIVIRAL PROPHYLAXIS
     Dosage: 2 DF, UNK
     Route: 030
     Dates: start: 20100218, end: 20100218
  13. HEPATITIS B IMMUNE GLOBULIN [Concomitant]
     Dosage: 2 DF, UNK
     Route: 030
     Dates: start: 20100318, end: 20100318
  14. HEPATITIS B IMMUNE GLOBULIN [Concomitant]
     Dosage: 2 DF, UNK
     Route: 030
     Dates: start: 20100415, end: 20100415
  15. HEPATITIS B IMMUNE GLOBULIN [Concomitant]
     Dosage: 2 DF, UNK
     Route: 030
     Dates: start: 20100204, end: 20100204
  16. HEPATITIS B IMMUNE GLOBULIN [Concomitant]
     Dosage: 2 DF, UNK
     Route: 030
     Dates: start: 20100513, end: 20100513
  17. HEPATITIS B IMMUNE GLOBULIN [Concomitant]
     Dosage: 2 DF, UNK
     Route: 030
     Dates: start: 20100902, end: 20100902
  18. HEPATITIS B IMMUNE GLOBULIN [Concomitant]
     Dosage: 2 DF, UNK
     Route: 030
     Dates: start: 20100708, end: 20100708
  19. HEPATITIS B IMMUNE GLOBULIN [Concomitant]
     Dosage: 2 DF, UNK
     Route: 030
     Dates: start: 20100610, end: 20100610
  20. HEPATITIS B IMMUNE GLOBULIN [Concomitant]
     Dosage: 2 DF, UNK
     Route: 030
     Dates: start: 20101125, end: 20101125
  21. HEPATITIS B IMMUNE GLOBULIN [Concomitant]
     Dosage: 2 DF, UNK
     Route: 030
     Dates: start: 20100805, end: 20100805
  22. HEPATITIS B IMMUNE GLOBULIN [Concomitant]
     Dosage: 2 DF, UNK
     Route: 030
     Dates: start: 20100930, end: 20100930
  23. HEPATITIS B IMMUNE GLOBULIN [Concomitant]
     Dosage: 2 DF, UNK
     Route: 030
     Dates: start: 20100828, end: 20100828
  24. NYSTATIN [Concomitant]
     Indication: INFECTION PROPHYLAXIS
     Dosage: 1 DF, QID
     Dates: start: 20100104, end: 20100118
  25. CIPROFLOXACIN [Concomitant]
     Indication: INFECTION PROPHYLAXIS
     Dosage: 500 MG, Q12H
     Route: 048
     Dates: start: 20100104, end: 20100118
  26. AMTREL [Concomitant]
     Indication: HYPERTENSION
     Dosage: 1 DF, QD
     Route: 048
     Dates: start: 20100119
  27. ALPRAZOLAM [Concomitant]
     Indication: HYPERTENSION
     Dosage: 0.5 MG, QN
     Route: 048
     Dates: start: 20100204
  28. AMLODIPINE [Concomitant]
     Indication: HYPERTENSION
     Dosage: 5 MG, QD
     Route: 048
     Dates: start: 20100104, end: 20100118
  29. BAKTAR [Concomitant]
     Indication: INFECTION PROPHYLAXIS
     Dosage: 800 MG, BIW
     Route: 048
     Dates: start: 20100119, end: 20100125
  30. SUBACILLIN [Concomitant]
     Dosage: 1.5 MG, Q6H
     Route: 042
     Dates: start: 20121119, end: 20121119
  31. SUBACILLIN [Concomitant]
     Dosage: 1.5 MG, Q6H
     Route: 042
     Dates: start: 20120822, end: 20120823
  32. NAPTON [Concomitant]
     Indication: PAIN PROPHYLAXIS
     Dosage: 750 MG, QD
     Route: 048
     Dates: start: 20120812, end: 20120816
  33. FLUMARIN [Concomitant]
     Dosage: 1 G, Q8H
     Route: 042
     Dates: start: 20120823, end: 20120827
  34. FLUMARIN [Concomitant]
     Dosage: 1 G, Q8H
     Route: 042
     Dates: start: 20121119, end: 20121126
  35. KINGMIN [Concomitant]
     Route: 042
     Dates: start: 20120927, end: 20121004
  36. SEFTEM [Concomitant]
     Indication: INFECTION PROPHYLAXIS
     Dosage: 100 MG, BID
     Route: 048
     Dates: start: 20120619, end: 20120626
  37. SEFTEM [Concomitant]
     Dosage: 200 MG, TID
     Route: 048
     Dates: start: 20120812, end: 20120816
  38. URSO [Concomitant]
     Indication: BILE DUCT OBSTRUCTION
     Dosage: 100 MG, QD
     Route: 048
     Dates: start: 20120812, end: 20120830
  39. URSO [Concomitant]
     Dosage: 100 MG, TID
     Dates: start: 20120619, end: 20120626
  40. THROUGH [Concomitant]
     Dosage: 20 MG, QN
     Route: 048
     Dates: start: 20120704, end: 20120807
  41. THROUGH [Concomitant]
     Dosage: 20 MG, QN
     Route: 048
     Dates: start: 20120703, end: 20120710
  42. THROUGH [Concomitant]
     Dosage: 1 DF, QN
     Route: 048
     Dates: start: 20120210, end: 20120302
  43. ANXIEDIN [Concomitant]
     Indication: SLEEP DISORDER
     Dosage: 1 MG, UNK
     Route: 048
     Dates: start: 20121220
  44. GASTER [Concomitant]
     Dosage: 20 MG, BID
     Route: 048
     Dates: start: 20120703, end: 20120710
  45. TRAMAL [Concomitant]
     Indication: PAIN PROPHYLAXIS
     Dosage: 50 MG, TID
     Route: 048
     Dates: start: 20120807, end: 20120814
  46. VESYCA [Concomitant]
     Dosage: 150 MG, BID
     Route: 048
     Dates: start: 20120717, end: 20120724
  47. SIMETHICONE [Concomitant]
     Dosage: 40 MG, BID
     Route: 048
     Dates: start: 20120703, end: 20120710
  48. BAYHEP B [Concomitant]
     Indication: ANTIVIRAL PROPHYLAXIS
     Dosage: 2 DF, UNK
     Route: 030
     Dates: start: 20120731, end: 20120731
  49. BAYHEP B [Concomitant]
     Dosage: 2 DF, UNK
     Route: 030
     Dates: start: 20121129, end: 20121129
  50. BAYHEP B [Concomitant]
     Dosage: 2 DF
     Route: 030
     Dates: start: 20110315, end: 20110315
  51. BAYHEP B [Concomitant]
     Dosage: 2 DF, UNK
     Route: 030
     Dates: start: 20120508, end: 20120508
  52. BAYHEP B [Concomitant]
     Dosage: 2 DF, UNK
     Route: 030
     Dates: start: 20111018, end: 20111018
  53. MEDICON A [Concomitant]
     Indication: UPPER RESPIRATORY TRACT INFECTION
     Dosage: 1 DF, QID
     Route: 048
     Dates: start: 20120330, end: 20120404
  54. MEDICON A [Concomitant]
     Dosage: 1 DF, QID
     Route: 048
     Dates: start: 20110118, end: 20110123
  55. MEDICON A [Concomitant]
     Dosage: 1 DF, QID
     Route: 048
     Dates: start: 20110215, end: 20110220
  56. TAMIFLU [Concomitant]
     Dosage: 75 MG, BID
     Route: 048
     Dates: start: 20110118, end: 20110123
  57. TAMIFLU [Concomitant]
     Dosage: 75 MG, BID
     Route: 048
     Dates: start: 20120403, end: 20120407
  58. TAKEPRON [Concomitant]
     Dosage: 30 MG, QD
     Route: 048
     Dates: start: 20120724, end: 20120807
  59. ALLEGRA [Concomitant]
     Dosage: 180 MG, QD
     Route: 048
     Dates: start: 20120403, end: 20120407
  60. ZINC OXIDE [Concomitant]
     Dates: start: 20120210, end: 20120307
  61. DENOSIN [Concomitant]
     Dosage: 5 MG, QD
     Route: 048
     Dates: start: 20120110, end: 20120114
  62. BROEN C [Concomitant]
     Dosage: 1 DF, QID
     Route: 048
     Dates: start: 20120330, end: 20120404
  63. CIPROXIN [Concomitant]
     Dosage: 250 MG, Q12H
     Route: 048
     Dates: start: 20120110, end: 20120114
  64. ACTEIN [Concomitant]
     Dosage: 600 MG, QD
     Route: 048
     Dates: start: 20120403, end: 20120407
  65. BROWN MIXTURE [Concomitant]
     Dosage: 10 ML, QID
     Route: 048
     Dates: start: 20120403, end: 20120407
  66. XANAX [Concomitant]
     Indication: HYPERTENSION
     Dosage: 0.5 MG, QN
     Route: 048
     Dates: start: 20100204
  67. AUGMENTIN [Concomitant]
     Dosage: 1 DF, Q12H
     Route: 048
     Dates: start: 20120131, end: 20120302
  68. NORMACOL PLUS [Concomitant]
     Dosage: 1 DF, QD
     Route: 048
     Dates: start: 20120210, end: 20120302
  69. BARACLUDE [Concomitant]
     Indication: HEPATITIS ACUTE
     Dosage: 0.5 MG, QD
     Route: 048
     Dates: start: 20100208

REACTIONS (1)
  - Toxic nodular goitre [Recovered/Resolved]
